FAERS Safety Report 5703681-5 (Version None)
Quarter: 2008Q2

REPORT INFORMATION
  Report Type: 
  Country: None (occurrence: None)
  Receive Date: 20080413
  Receipt Date: 20080404
  Transmission Date: 20081010
  Serious: Yes (Hospitalization)
  Sender: FDA-Public Use
  Company Number: PHHY2008CH04829

PATIENT
  Age: 86 Year
  Sex: Female

DRUGS (4)
  1. DIOVAN HCT [Suspect]
     Indication: HYPERTENSION
     Dates: start: 20080305, end: 20080307
  2. COAPROVEL [Suspect]
     Indication: HYPERTENSION
     Dates: start: 20080201, end: 20080305
  3. BILOL [Concomitant]
     Indication: HYPERTENSION
     Dosage: 10 MG/DAY
  4. ASPIRIN [Concomitant]
     Indication: HYPERTENSION
     Dosage: 100 MG/DAY

REACTIONS (10)
  - BLOOD OSMOLARITY DECREASED [None]
  - CONFUSIONAL STATE [None]
  - DISORIENTATION [None]
  - HYPONATRAEMIA [None]
  - INAPPROPRIATE ANTIDIURETIC HORMONE SECRETION [None]
  - MODERATE MENTAL RETARDATION [None]
  - SYNCOPE [None]
  - URINE OSMOLARITY INCREASED [None]
  - URINE SODIUM INCREASED [None]
  - VOMITING [None]
